FAERS Safety Report 19472878 (Version 2)
Quarter: 2021Q3

REPORT INFORMATION
  Report Type: Report from Study
  Country: GB (occurrence: GB)
  Receive Date: 20210629
  Receipt Date: 20210804
  Transmission Date: 20211014
  Serious: Yes (Hospitalization)
  Sender: FDA-Public Use
  Company Number: GB-VERTEX PHARMACEUTICALS-2021-008536

PATIENT
  Sex: Female

DRUGS (12)
  1. PARAVIT CF [Concomitant]
  2. SALBUTAMOL [Concomitant]
     Active Substance: ALBUTEROL
  3. KALYDECO [Suspect]
     Active Substance: IVACAFTOR
     Indication: CYSTIC FIBROSIS
     Dosage: 150MG IVACAFTOR, QD
     Route: 048
     Dates: start: 20191007
  4. URSODEOXYCHOLIC ACID [Concomitant]
     Active Substance: URSODIOL
  5. ESOMEPRAZOLE. [Concomitant]
     Active Substance: ESOMEPRAZOLE MAGNESIUM
  6. PROCHLORPERAZINE. [Concomitant]
     Active Substance: PROCHLORPERAZINE
  7. AZITHROMYCIN ANHYDROUS. [Concomitant]
     Active Substance: AZITHROMYCIN ANHYDROUS
  8. KAFTRIO [Suspect]
     Active Substance: ELEXACAFTOR\IVACAFTOR\TEZACAFTOR
     Indication: CYSTIC FIBROSIS
     Dosage: 75MG IVACAFTOR/50MG TEZACAFTOR/100MG ELEXACAFTOR, BID
     Route: 048
     Dates: start: 20191007
  9. MIRTAZAPINE. [Concomitant]
     Active Substance: MIRTAZAPINE
  10. PULMOZYME [Concomitant]
     Active Substance: DORNASE ALFA
  11. LORAZEPAM. [Concomitant]
     Active Substance: LORAZEPAM
  12. OXYCODONE [Concomitant]
     Active Substance: OXYCODONE

REACTIONS (1)
  - Distal intestinal obstruction syndrome [Recovered/Resolved]

NARRATIVE: CASE EVENT DATE: 20210506
